FAERS Safety Report 13025937 (Version 1)
Quarter: 2016Q4

REPORT INFORMATION
  Report Type: Spontaneous
  Country: US (occurrence: US)
  Receive Date: 20161212
  Receipt Date: 20161212
  Transmission Date: 20170207
  Serious: No
  Sender: FDA-Public Use
  Company Number: None

PATIENT
  Sex: Female

DRUGS (1)
  1. TECFIDERA [Suspect]
     Active Substance: DIMETHYL FUMARATE
     Indication: MULTIPLE SCLEROSIS
     Route: 048
     Dates: start: 20161123

REACTIONS (6)
  - Headache [None]
  - Refusal of treatment by patient [None]
  - JC virus test positive [None]
  - Feeling abnormal [None]
  - Confusional state [None]
  - Arthralgia [None]
